FAERS Safety Report 4285983-5 (Version None)
Quarter: 2004Q1

REPORT INFORMATION
  Report Type: 
  Country: None (occurrence: None)
  Receive Date: 20040205
  Receipt Date: 20040121
  Transmission Date: 20041129
  Serious: Yes (Hospitalization)
  Sender: FDA-Public Use
  Company Number: WAES 0401GBR00180

PATIENT
  Sex: Male

DRUGS (4)
  1. [THERAPY UNSPECIFIED] [Concomitant]
  2. ATENOLOL [Concomitant]
  3. ZOCOR [Suspect]
     Route: 048
  4. SIMVASTATIN [Concomitant]
     Route: 048

REACTIONS (4)
  - CARDIAC DISORDER [None]
  - MUSCLE SPASMS [None]
  - PARAESTHESIA [None]
  - PHARMACEUTICAL PRODUCT COMPLAINT [None]
